FAERS Safety Report 16990075 (Version 1)
Quarter: 2019Q4

REPORT INFORMATION
  Report Type: Spontaneous
  Country: US (occurrence: US)
  Receive Date: 20190920
  Receipt Date: 20190920
  Transmission Date: 20200122
  Serious: Yes (Hospitalization)
  Sender: FDA-Public Use
  Company Number: None

PATIENT
  Age: 67 Year
  Sex: Male
  Weight: 78.6 kg

DRUGS (2)
  1. ATROPINE. [Suspect]
     Active Substance: ATROPINE
     Indication: VASCULAR OPERATION
     Dosage: ?          OTHER DOSE:0.5MG;?
     Route: 042
     Dates: start: 20190626, end: 20190626
  2. ATROPINE. [Suspect]
     Active Substance: ATROPINE
     Indication: CARDIAC OPERATION
     Dosage: ?          OTHER DOSE:0.5MG;?
     Route: 042
     Dates: start: 20190626, end: 20190626

REACTIONS (1)
  - Acute myocardial infarction [None]

NARRATIVE: CASE EVENT DATE: 20190626
